FAERS Safety Report 7272874-0 (Version None)
Quarter: 2011Q1

REPORT INFORMATION
  Report Type: 
  Country: None (occurrence: None)
  Receive Date: 20110203
  Receipt Date: 20110119
  Transmission Date: 20110831
  Serious: Yes (Other)
  Sender: FDA-Public Use
  Company Number: IT-CELGENEUS-083-C5013-11011977

PATIENT
  Sex: Male
  Weight: 84 kg

DRUGS (12)
  1. CARDIOASPIRINE [Concomitant]
     Indication: THROMBOSIS PROPHYLAXIS
     Route: 048
     Dates: start: 20101020
  2. BACTRIM [Concomitant]
     Route: 048
     Dates: start: 20101020
  3. GRANULOKINE [Concomitant]
     Indication: NEUTROPENIA
     Route: 058
     Dates: start: 20101215, end: 20101217
  4. TRIATEC [Concomitant]
     Route: 048
     Dates: start: 20110105
  5. CC-5013 [Suspect]
     Route: 048
     Dates: start: 20101222, end: 20110119
  6. ZILORIC [Concomitant]
     Route: 048
     Dates: start: 19900101
  7. LANSOPRAZOLE [Concomitant]
     Indication: PROPHYLAXIS
     Route: 048
     Dates: start: 20101020
  8. CC-5013 [Suspect]
     Indication: MULTIPLE MYELOMA
     Route: 048
     Dates: start: 20101020
  9. DEXAMETHASONE [Suspect]
     Indication: MULTIPLE MYELOMA
     Route: 065
     Dates: start: 20101020
  10. BIFRIL [Concomitant]
     Indication: HYPERTENSION
     Route: 048
     Dates: start: 20100201
  11. DEXAMETHASONE [Suspect]
     Route: 065
     Dates: start: 20101222, end: 20110119
  12. DIURESIX [Concomitant]
     Route: 048
     Dates: start: 20110105

REACTIONS (1)
  - LEFT VENTRICULAR DYSFUNCTION [None]
